FAERS Safety Report 4465753-5 (Version None)
Quarter: 2004Q4

REPORT INFORMATION
  Report Type: 
  Country: None (occurrence: None)
  Receive Date: 20041001
  Receipt Date: 20041001
  Transmission Date: 20050328
  Serious: Yes (Life-Threatening)
  Sender: FDA-Public Use
  Company Number: None

PATIENT
  Sex: Male
  Weight: 23.4 kg

DRUGS (17)
  1. INTRALIPID 10% [Suspect]
     Dosage: 150ML IN TPN 6 DAYS PER WEEK
     Dates: start: 19990222, end: 20040915
  2. INTRALIPID 10% [Suspect]
  3. INTRALIPID 10% [Suspect]
  4. INTRALIPID 10% [Suspect]
  5. INTRALIPID 10% [Suspect]
  6. INTRALIPID 10% [Suspect]
  7. INTRALIPID 10% [Suspect]
  8. INTRALIPID 10% [Suspect]
  9. INTRALIPID 10% [Suspect]
  10. INTRALIPID 10% [Suspect]
  11. INTRALIPID 10% [Suspect]
  12. INTRALIPID 10% [Suspect]
  13. DEXTROSE [Concomitant]
  14. TRAVASOL 10% [Concomitant]
  15. LR [Concomitant]
  16. ZANTAC [Concomitant]
  17. M.V.I. [Concomitant]

REACTIONS (9)
  - BACTERIAL INFECTION [None]
  - CATHETER RELATED INFECTION [None]
  - CHOLESTASIS [None]
  - COLITIS ULCERATIVE [None]
  - FUNGAL INFECTION [None]
  - HEPATIC FAILURE [None]
  - LIVER TRANSPLANT [None]
  - PANCREATITIS [None]
  - PANCYTOPENIA [None]
